FAERS Safety Report 9139275 (Version 2)
Quarter: 2013Q1

REPORT INFORMATION
  Report Type: Spontaneous
  Country: BR (occurrence: BR)
  Receive Date: 20130305
  Receipt Date: 20130306
  Transmission Date: 20140127
  Serious: Yes (Hospitalization, Other)
  Sender: FDA-Public Use
  Company Number: PHHY2013BR020463

PATIENT
  Sex: Female
  Weight: 79 kg

DRUGS (2)
  1. TEGRETOL [Suspect]
     Indication: EPILEPSY
     Dosage: 3 DF (200MG), DAILY
     Route: 048
  2. PARLODEL [Suspect]
     Indication: MENSTRUAL DISORDER
     Dosage: 2 DF (2.5MG), DAILY
     Route: 048

REACTIONS (6)
  - Brain mass [Recovered/Resolved]
  - Migraine [Recovered/Resolved]
  - Blood prolactin increased [Recovered/Resolved]
  - Impatience [Recovered/Resolved]
  - Amenorrhoea [Recovered/Resolved]
  - Abnormal behaviour [Unknown]
